FAERS Safety Report 21743988 (Version 3)
Quarter: 2023Q1

REPORT INFORMATION
  Report Type: Spontaneous
  Country: DE (occurrence: DE)
  Receive Date: 20221217
  Receipt Date: 20230306
  Transmission Date: 20230418
  Serious: Yes (Hospitalization, Other)
  Sender: FDA-Public Use
  Company Number: DE-BRISTOL-MYERS SQUIBB COMPANY-2022-147746

PATIENT
  Age: 73 Year
  Sex: Male

DRUGS (3)
  1. CARBOPLATIN [Suspect]
     Active Substance: CARBOPLATIN
     Indication: Non-small cell lung cancer
     Dosage: 325 MG (49 DAYS) (LAST ADMINISTRATION DOSE DATE 16 JUN 2022)
     Route: 042
     Dates: start: 20220429
  2. YERVOY [Suspect]
     Active Substance: IPILIMUMAB
     Indication: Non-small cell lung cancer
     Dosage: 67 MG, Q2W (STOP DATE 12 SEP 2022) (137 DAYS)
     Route: 042
     Dates: start: 20220429
  3. OPDIVO [Suspect]
     Active Substance: NIVOLUMAB
     Indication: Non-small cell lung cancer
     Dosage: 360 MG, Q2W (STOP DATE 12 SEP 2022) (137 DAYS)
     Route: 042
     Dates: start: 20220429

REACTIONS (2)
  - Immune-mediated enterocolitis [Recovering/Resolving]
  - Colitis [Recovering/Resolving]

NARRATIVE: CASE EVENT DATE: 20221031
